FAERS Safety Report 9981495 (Version 1)
Quarter: 2014Q1

REPORT INFORMATION
  Report Type: Report from Study
  Country: US (occurrence: US)
  Receive Date: 20140307
  Receipt Date: 20140307
  Transmission Date: 20141002
  Serious: No
  Sender: FDA-Public Use
  Company Number: US-ABBVIE-13P-163-1179783-00

PATIENT
  Sex: Female

DRUGS (4)
  1. HUMIRA [Suspect]
     Indication: CROHN^S DISEASE
     Dates: start: 201309
  2. JUNEL FE 1/20 [Concomitant]
     Indication: CONTRACEPTION
  3. MULTIVITAMIN [Concomitant]
     Indication: VITAMIN SUPPLEMENTATION
  4. FOLIC ACID W/IRON/VITAMIN B12 [Concomitant]
     Indication: VITAMIN SUPPLEMENTATION

REACTIONS (7)
  - Acne [Not Recovered/Not Resolved]
  - Malaise [Not Recovered/Not Resolved]
  - Lip disorder [Not Recovered/Not Resolved]
  - Lip swelling [Not Recovered/Not Resolved]
  - Eczema [Not Recovered/Not Resolved]
  - Abdominal pain [Not Recovered/Not Resolved]
  - Injection site urticaria [Not Recovered/Not Resolved]
